FAERS Safety Report 4291633-4 (Version None)
Quarter: 2004Q1

REPORT INFORMATION
  Report Type: 
  Country: None (occurrence: None)
  Receive Date: 20040211
  Receipt Date: 20031028
  Transmission Date: 20041129
  Serious: No
  Sender: FDA-Public Use
  Company Number: US-GLAXOSMITHKLINE-A0431911A

PATIENT
  Age: 60 Year
  Sex: Female
  Weight: 54.5 kg

DRUGS (3)
  1. IMITREX [Suspect]
     Route: 065
     Dates: start: 20031028
  2. SYNTHROID [Concomitant]
     Route: 048
     Dates: start: 19900101
  3. ZOLOFT [Concomitant]
     Indication: DEPRESSION
     Route: 048
     Dates: start: 20000101

REACTIONS (2)
  - CHEST PAIN [None]
  - HYPERTENSION [None]
